FAERS Safety Report 14125771 (Version 1)
Quarter: 2017Q4

REPORT INFORMATION
  Report Type: Spontaneous
  Country: JP (occurrence: JP)
  Receive Date: 20171025
  Receipt Date: 20171025
  Transmission Date: 20180321
  Serious: Yes (Hospitalization, Other)
  Sender: FDA-Public Use
  Company Number: JP-GLAXOSMITHKLINE-JP2017JPN161402

PATIENT
  Age: 71 Year
  Sex: Male

DRUGS (2)
  1. VALTREX [Suspect]
     Active Substance: VALACYCLOVIR HYDROCHLORIDE
     Indication: HERPES ZOSTER
     Dosage: 500 MG, QOD
     Dates: start: 20171017, end: 20171019
  2. LYRICA [Concomitant]
     Active Substance: PREGABALIN
     Dosage: UNK

REACTIONS (3)
  - Toxic encephalopathy [Unknown]
  - Altered state of consciousness [Unknown]
  - Encephalitis [Unknown]

NARRATIVE: CASE EVENT DATE: 201710
